FAERS Safety Report 9132168 (Version 2)
Quarter: 2013Q4

REPORT INFORMATION
  Report Type: Report from Study
  Country: US (occurrence: US)
  Receive Date: 20130301
  Receipt Date: 20131230
  Transmission Date: 20140711
  Serious: Yes (Other)
  Sender: FDA-Public Use
  Company Number: US-PURDUE-USA-2013-0098380

PATIENT
  Age: 57 Year
  Sex: Male

DRUGS (4)
  1. OXYCONTIN (NDA 22-272) [Suspect]
     Indication: BACK PAIN
     Dosage: UNK
     Route: 048
     Dates: start: 2009
  2. OXYCONTIN (NDA 22-272) [Suspect]
     Dosage: 80 MG, TID
     Route: 048
     Dates: start: 20131121
  3. ROXICODONE [Suspect]
     Indication: BREAKTHROUGH PAIN
     Dosage: UNK
     Route: 048
  4. XANAX [Suspect]
     Indication: INSOMNIA
     Dosage: UNKNOWN

REACTIONS (8)
  - Tooth fracture [Unknown]
  - Tooth disorder [Not Recovered/Not Resolved]
  - Infection [Unknown]
  - Gingival bleeding [Unknown]
  - Gingival pain [Unknown]
  - Toothache [Unknown]
  - Insomnia [Not Recovered/Not Resolved]
  - Somnolence [Unknown]
